FAERS Safety Report 5007082-7 (Version None)
Quarter: 2006Q2

REPORT INFORMATION
  Report Type: 
  Country: None (occurrence: None)
  Receive Date: 20060517
  Receipt Date: 20060508
  Transmission Date: 20061013
  Serious: Yes (Other)
  Sender: FDA-Public Use
  Company Number: 2006061154

PATIENT
  Age: 66 Year
  Sex: Female
  Weight: 77.1115 kg

DRUGS (9)
  1. DETROL LA [Suspect]
     Indication: URINARY INCONTINENCE
     Dosage: 4 MG (4 MG, 1 IN 1 D), ORAL
     Route: 048
     Dates: start: 20040101
  2. MICARDIS HCT [Concomitant]
  3. NORVASC [Concomitant]
  4. PROPRANOLOL [Concomitant]
  5. LEXAPRO [Concomitant]
  6. REMERON [Concomitant]
  7. NEXIUM [Concomitant]
  8. ZANTAC [Concomitant]
  9. MOBIC [Concomitant]

REACTIONS (5)
  - BLOOD CHOLESTEROL INCREASED [None]
  - DRUG INEFFECTIVE [None]
  - DRY MOUTH [None]
  - INCORRECT DOSE ADMINISTERED [None]
  - PHARYNGEAL POLYP [None]
